FAERS Safety Report 20021660 (Version 1)
Quarter: 2021Q4

REPORT INFORMATION
  Report Type: Spontaneous
  Country: US (occurrence: US)
  Receive Date: 20211101
  Receipt Date: 20211101
  Transmission Date: 20220303
  Serious: No
  Sender: FDA-Public Use
  Company Number: US-SUNOVION-2021SUN004153

PATIENT
  Age: 47 Year
  Sex: Male

DRUGS (6)
  1. LATUDA [Suspect]
     Active Substance: LURASIDONE HYDROCHLORIDE
     Indication: Schizophrenia
     Dosage: UNK
     Route: 048
  2. SECUADO [Suspect]
     Active Substance: ASENAPINE
     Indication: Schizophrenia
     Dosage: 3.8 MG
     Route: 062
  3. SECUADO [Suspect]
     Active Substance: ASENAPINE
     Dosage: 5.7 MG, QW
     Route: 062
     Dates: start: 202007
  4. SECUADO [Suspect]
     Active Substance: ASENAPINE
     Dosage: 2.8 MG (HALF OF 5.7 MG)
     Route: 062
  5. VITAMIN B12 [Concomitant]
     Active Substance: CYANOCOBALAMIN
     Dosage: UNK
  6. FISH OIL [Concomitant]
     Active Substance: FISH OIL
     Dosage: UNK

REACTIONS (8)
  - Feeling abnormal [Unknown]
  - Eating disorder [Not Recovered/Not Resolved]
  - Abnormal behaviour [Not Recovered/Not Resolved]
  - Disturbance in attention [Not Recovered/Not Resolved]
  - Confusional state [Not Recovered/Not Resolved]
  - Fatigue [Not Recovered/Not Resolved]
  - Hypersomnia [Not Recovered/Not Resolved]
  - Decreased appetite [Not Recovered/Not Resolved]
